FAERS Safety Report 8937932 (Version 2)
Quarter: 2012Q4

REPORT INFORMATION
  Report Type: 
  Country: US (occurrence: US)
  Receive Date: 20121130
  Receipt Date: 20121214
  Transmission Date: 20130627
  Serious: Yes (Hospitalization, Other)
  Sender: FDA-Public Use
  Company Number: US-009507513-1202USA02452

PATIENT

DRUGS (2)
  1. FOSAMAX [Suspect]
     Indication: OSTEOPOROSIS
     Dosage: 10 mg, qd
     Route: 048
     Dates: start: 19991110, end: 20021029
  2. ACTONEL [Suspect]
     Indication: OSTEOPOROSIS
     Dosage: 30 mg, UNK
     Route: 048
     Dates: start: 20021030, end: 200803

REACTIONS (63)
  - Femur fracture [Unknown]
  - Low turnover osteopathy [Unknown]
  - Osteoarthritis [Unknown]
  - Hyperparathyroidism [Not Recovered/Not Resolved]
  - Gastrooesophageal reflux disease [Unknown]
  - Diaphragmatic hernia [Unknown]
  - Mitral valve prolapse [Unknown]
  - Diverticulitis intestinal haemorrhagic [Unknown]
  - Glaucoma [Unknown]
  - Cataract [Unknown]
  - Arthritis [Unknown]
  - Arthritis [Unknown]
  - Foot fracture [Unknown]
  - Pain in extremity [Unknown]
  - Drug ineffective [Unknown]
  - Bunion [Unknown]
  - Inflammation [Unknown]
  - Drug therapeutic incompatibility [Unknown]
  - Drug ineffective [Unknown]
  - Hypercholesterolaemia [Unknown]
  - Foot deformity [Unknown]
  - Periarthritis [Unknown]
  - Periostitis [Unknown]
  - Sinus tarsi syndrome [Unknown]
  - Exostosis [Unknown]
  - Limb asymmetry [Unknown]
  - Limb injury [Unknown]
  - Limb injury [Unknown]
  - Fracture delayed union [Unknown]
  - Neuroma [Unknown]
  - Foot deformity [Unknown]
  - Ankle deformity [Unknown]
  - Fall [Unknown]
  - Spinal fracture [Unknown]
  - Varicose vein [Unknown]
  - Necrosis [Unknown]
  - Osteopenia [Unknown]
  - Exostosis [Unknown]
  - Telangiectasia [Unknown]
  - Dermatitis contact [Unknown]
  - Collagen disorder [Unknown]
  - Uveitis [Unknown]
  - Femur fracture [Unknown]
  - Fracture nonunion [Unknown]
  - Synovial cyst [Unknown]
  - Loose body in joint [Unknown]
  - Hiatus hernia [Unknown]
  - Diverticulitis [Unknown]
  - Dry eye [Unknown]
  - Sinus disorder [Unknown]
  - Sinus headache [Unknown]
  - Constipation [Unknown]
  - Anxiety [Unknown]
  - Dyspepsia [Unknown]
  - Parathyroid disorder [Unknown]
  - Aortic calcification [Unknown]
  - Pain in extremity [Unknown]
  - Cyst [Unknown]
  - Pain in extremity [Unknown]
  - Paraesthesia [Unknown]
  - Spinal osteoarthritis [Unknown]
  - Synovial cyst [Unknown]
  - Basal cell carcinoma [Unknown]
